FAERS Safety Report 5684404-5 (Version None)
Quarter: 2008Q1

REPORT INFORMATION
  Report Type: 
  Country: None (occurrence: None)
  Receive Date: 20080327
  Receipt Date: 20080327
  Transmission Date: 20080703
  Serious: Yes (Other)
  Sender: FDA-Public Use
  Company Number: None

PATIENT
  Age: 12 Year
  Sex: Male
  Weight: 70 kg

DRUGS (1)
  1. LAMOTRIGINE CHEWABLE [Suspect]
     Indication: CONVULSION
     Dosage: 150MG  2X DAY  ORAL
     Route: 048
     Dates: start: 20070404, end: 20071001

REACTIONS (2)
  - DRUG EFFECT DECREASED [None]
  - THERAPEUTIC RESPONSE UNEXPECTED WITH DRUG SUBSTITUTION [None]
